FAERS Safety Report 7285681-X (Version None)
Quarter: 2011Q1

REPORT INFORMATION
  Report Type: 
  Country: None (occurrence: None)
  Receive Date: 20110210
  Receipt Date: 20110203
  Transmission Date: 20110831
  Serious: Yes (Other)
  Sender: FDA-Public Use
  Company Number: B0698180A

PATIENT
  Age: 71 Year
  Sex: Male

DRUGS (2)
  1. URIEF [Concomitant]
     Route: 048
  2. AVOLVE [Suspect]
     Dosage: .5MG PER DAY
     Route: 048

REACTIONS (2)
  - ALANINE AMINOTRANSFERASE INCREASED [None]
  - ASPARTATE AMINOTRANSFERASE INCREASED [None]
